FAERS Safety Report 12237111 (Version 3)
Quarter: 2016Q2

REPORT INFORMATION
  Report Type: Spontaneous
  Country: FR (occurrence: FR)
  Receive Date: 20160405
  Receipt Date: 20160412
  Transmission Date: 20160815
  Serious: Yes (Hospitalization, Disabling, Other)
  Sender: FDA-Public Use
  Company Number: FR-ROCHE-1735871

PATIENT
  Age: 79 Year
  Sex: Male

DRUGS (3)
  1. LUCENTIS [Suspect]
     Active Substance: RANIBIZUMAB
     Dosage: IN THE LEFT EYE
     Route: 050
     Dates: start: 20160303
  2. LUCENTIS [Suspect]
     Active Substance: RANIBIZUMAB
     Indication: RETINAL VEIN OCCLUSION
     Route: 050
     Dates: start: 201312
  3. AZITHROMYCIN ANHYDROUS. [Suspect]
     Active Substance: AZITHROMYCIN ANHYDROUS
     Indication: PREMEDICATION
     Route: 065
     Dates: start: 20160302, end: 20160305

REACTIONS (4)
  - Blindness unilateral [Unknown]
  - Retinal detachment [Unknown]
  - Endophthalmitis [Unknown]
  - Retinal ischaemia [Unknown]

NARRATIVE: CASE EVENT DATE: 20160307
